FAERS Safety Report 6550820-2 (Version None)
Quarter: 2010Q1

REPORT INFORMATION
  Report Type: 
  Country: None (occurrence: None)
  Receive Date: 20100125
  Receipt Date: 20100120
  Transmission Date: 20100710
  Serious: Yes (Life-Threatening)
  Sender: FDA-Public Use
  Company Number: PHHY2010JP02045

PATIENT
  Age: 73 Year
  Sex: Female

DRUGS (11)
  1. SANDIMMUNE [Suspect]
     Indication: HEPATITIS FULMINANT
     Dosage: 4 MG/KG/DAY
     Route: 042
     Dates: start: 20091229, end: 20100105
  2. PREDONINE [Suspect]
     Dosage: 45 MG/DAY
     Route: 048
     Dates: start: 20091229
  3. KANAMYCIN [Concomitant]
     Dosage: 1500 MG, UNK
     Route: 048
     Dates: start: 20091229
  4. DIOVAN [Concomitant]
     Dosage: 80 MG, UNK
     Route: 048
  5. MEVALOTIN [Concomitant]
     Dosage: 10 MG, UNK
     Route: 048
  6. LORCAM [Concomitant]
     Dosage: 4 MG, UNK
     Route: 048
  7. MUCOSTA [Concomitant]
     Dosage: 100 MG, UNK
     Route: 048
  8. PARIET [Concomitant]
     Dosage: 10 MG, UNK
     Route: 048
     Dates: start: 20091229
  9. MAGMITT [Concomitant]
     Dosage: 330 MG, UNK
     Route: 048
  10. PORTOLAC [Concomitant]
     Dosage: 6 G, UNK
     Route: 048
     Dates: start: 20091229
  11. LAXOBERON [Concomitant]
     Dosage: UNK
     Route: 048
     Dates: start: 20091229

REACTIONS (2)
  - IMMUNOSUPPRESSANT DRUG LEVEL [None]
  - THROMBOTIC THROMBOCYTOPENIC PURPURA [None]
